FAERS Safety Report 10384578 (Version 2)
Quarter: 2014Q3

REPORT INFORMATION
  Report Type: Spontaneous
  Country: GB (occurrence: None)
  Receive Date: 20140812
  Receipt Date: 20140825
  Transmission Date: 20150326
  Serious: Yes (Death, Disabling, Other)
  Sender: FDA-Public Use
  Company Number: AUR-APL-2014-08256

PATIENT
  Age: 71 Year
  Sex: Male
  Weight: 50.8 kg

DRUGS (10)
  1. DIAZEPAM. [Concomitant]
     Active Substance: DIAZEPAM
  2. LOSARTAN POTASSIUM. [Concomitant]
     Active Substance: LOSARTAN POTASSIUM
  3. ASPIRIN (ACETYLSALICYLIC ACID) [Concomitant]
     Active Substance: ASPIRIN
  4. ZOPICLONE [Concomitant]
     Active Substance: ZOPICLONE
  5. ATORVASTATIN CALCIUM. [Suspect]
     Active Substance: ATORVASTATIN CALCIUM
     Indication: HYPERCHOLESTEROLAEMIA
     Dosage: 40MG ONCE A DAY
     Dates: end: 20130414
  6. AMLODIPINE [Concomitant]
     Active Substance: AMLODIPINE BESYLATE
  7. ENALAPRIL [Concomitant]
     Active Substance: ENALAPRIL
  8. MIRTAZAPINE. [Suspect]
     Active Substance: MIRTAZAPINE
     Indication: DEPRESSION
     Dosage: 45MG ONCE A DAY AT NIGHT
     Dates: start: 1998, end: 201308
  9. FLUPENTIXOL [Concomitant]
     Active Substance: FLUPENTIXOL
  10. OMEPRAZOLE. [Concomitant]
     Active Substance: OMEPRAZOLE

REACTIONS (18)
  - Overdose [None]
  - Agitation [None]
  - Dysphagia [None]
  - Asthenia [None]
  - Asphyxia [None]
  - Balance disorder [None]
  - Dizziness [None]
  - Insomnia [None]
  - Withdrawal syndrome [None]
  - Anxiety [None]
  - Restlessness [None]
  - Fatigue [None]
  - Malaise [None]
  - Completed suicide [None]
  - Confusional state [None]
  - Movement disorder [None]
  - Suicide attempt [None]
  - Suicidal ideation [None]

NARRATIVE: CASE EVENT DATE: 20130416
